FAERS Safety Report 21290451 (Version 1)
Quarter: 2022Q3

REPORT INFORMATION
  Report Type: Other
  Country: None (occurrence: SG)
  Receive Date: 20220903
  Receipt Date: 20220903
  Transmission Date: 20221027
  Serious: Yes (Hospitalization, Other)
  Sender: FDA-Public Use
  Company Number: SG-AptaPharma Inc.-2132532

PATIENT
  Sex: Male

DRUGS (7)
  1. SILDENAFIL FOR ORAL SUSPENSION [Suspect]
     Active Substance: SILDENAFIL CITRATE
     Indication: Product used for unknown indication
     Route: 065
  2. TADALAFIL [Suspect]
     Active Substance: TADALAFIL
     Route: 065
  3. AMPHETAMINE [Suspect]
     Active Substance: AMPHETAMINE
     Route: 065
  4. METHAMPHETAMINE HYDROCHLORIDE [Suspect]
     Active Substance: METHAMPHETAMINE HYDROCHLORIDE
     Route: 065
  5. EUTYLONE [Suspect]
     Active Substance: EUTYLONE
     Route: 065
  6. 1-HYDROXYMIDAZOLAM [Suspect]
     Active Substance: 1-HYDROXYMIDAZOLAM
     Route: 065
  7. LIDOCAINE HYDROCHLORIDE [Suspect]
     Active Substance: LIDOCAINE HYDROCHLORIDE
     Route: 065

REACTIONS (6)
  - Hypoglycaemia [Recovered/Resolved]
  - Multiple organ dysfunction syndrome [Recovered/Resolved]
  - Subdural haematoma [Recovered/Resolved]
  - Intentional overdose [Unknown]
  - Substance use [Unknown]
  - Substance abuse [Unknown]
